FAERS Safety Report 5053481-7 (Version None)
Quarter: 2006Q3

REPORT INFORMATION
  Report Type: 
  Country: None (occurrence: None)
  Receive Date: 20060718
  Receipt Date: 20060706
  Transmission Date: 20061208
  Serious: Yes (Other)
  Sender: FDA-Public Use
  Company Number: DE-JNJFOC-20060701437

PATIENT
  Age: 84 Year
  Sex: Female

DRUGS (4)
  1. RISPERDAL [Suspect]
     Indication: DRUG USE FOR UNKNOWN INDICATION
     Route: 048
  2. NIFEDIPINE [Concomitant]
  3. RAMIPRIL [Concomitant]
  4. MELPERON [Concomitant]

REACTIONS (1)
  - AGRANULOCYTOSIS [None]
